FAERS Safety Report 24170285 (Version 1)
Quarter: 2024Q3

REPORT INFORMATION
  Report Type: Report from Study
  Country: US (occurrence: US)
  Receive Date: 20240803
  Receipt Date: 20240803
  Transmission Date: 20241016
  Serious: Yes (Other)
  Sender: TEVA
  Company Number: US-TEVA-VS-3228478

PATIENT
  Age: 70 Year
  Sex: Female

DRUGS (35)
  1. AUSTEDO [Suspect]
     Active Substance: DEUTETRABENAZINE
     Indication: Tremor
     Route: 048
     Dates: start: 20240610
  2. CARBIDOPA-LE [Concomitant]
     Dosage: 25-100MG
     Route: 065
  3. AJOVY SOA [Concomitant]
     Route: 065
  4. EMGALITY SOA [Concomitant]
     Route: 065
  5. IRON [Concomitant]
     Active Substance: IRON
     Dosage: 325 (65 MG
     Route: 065
  6. MEMANTINE HC [Concomitant]
     Route: 065
  7. STOOL SOFTEN [Concomitant]
     Route: 065
  8. VITAMIN E [Concomitant]
     Active Substance: .ALPHA.-TOCOPHEROL
     Dosage: 1000 UNIT
     Route: 065
  9. AMLODIPINE 13 [Concomitant]
     Route: 065
  10. DONEPEZIL HC [Concomitant]
     Route: 065
  11. HUMALOG SOL [Concomitant]
     Dosage: 100UNIT/ML
     Route: 065
  12. MAGNESIUM [Concomitant]
     Active Substance: MAGNESIUM
     Route: 065
  13. NASONEX [Concomitant]
     Active Substance: MOMETASONE FUROATE
     Dosage: 24HR SUS 50MCG/AC
     Route: 065
  14. PROMETHAZINE [Concomitant]
     Active Substance: PROMETHAZINE HYDROCHLORIDE
     Route: 065
  15. VITAMIN D3 [Concomitant]
     Active Substance: CHOLECALCIFEROL
     Dosage: 125 MCG(50
     Route: 065
  16. ALBUTEROL SU AER [Concomitant]
     Dosage: 108 (90
     Route: 065
  17. ATORVASTATIN [Concomitant]
     Active Substance: ATORVASTATIN
     Route: 065
  18. FEXOFENADINE [Concomitant]
     Active Substance: FEXOFENADINE HYDROCHLORIDE
     Route: 065
  19. GABAPENTIN [Concomitant]
     Active Substance: GABAPENTIN
     Route: 065
  20. HYDRALAZINE [Concomitant]
     Active Substance: HYDRALAZINE HYDROCHLORIDE
     Route: 065
  21. NEBIVOLOL HC [Concomitant]
     Route: 065
  22. PANTOPRAZOLE [Concomitant]
     Active Substance: PANTOPRAZOLE
     Route: 065
  23. POTASSIUM [Concomitant]
     Active Substance: POTASSIUM
     Route: 065
  24. HYDROCODONE [Concomitant]
     Active Substance: HYDROCODONE
     Dosage: 10 - 325MG
     Route: 065
  25. METOCLOPRAMI [Concomitant]
     Route: 065
  26. ASPIRIN [Concomitant]
     Active Substance: ASPIRIN
     Route: 065
  27. CETIRIZINE H [Concomitant]
     Route: 065
  28. CIMETIDINE [Concomitant]
     Active Substance: CIMETIDINE
     Route: 065
  29. ERYTHROCIN S [Concomitant]
     Route: 065
  30. OMEGA 3 [Concomitant]
     Active Substance: CAPSAICIN
     Dosage: ONE A DAY WO CHE
  31. PROBIOTICS NOS [Concomitant]
     Active Substance: PROBIOTICS NOS
     Route: 065
  32. VITAMIN B12 [Concomitant]
     Active Substance: CYANOCOBALAMIN
     Dosage: TBC
     Route: 065
  33. FENOFIBRATE [Concomitant]
     Active Substance: FENOFIBRATE
     Route: 065
  34. ONDANSETRON [Concomitant]
     Active Substance: ONDANSETRON
     Route: 065
  35. TRAZODONE HC [Concomitant]
     Route: 065

REACTIONS (4)
  - Mental impairment [Unknown]
  - Product dose omission issue [Unknown]
  - Tremor [Unknown]
  - Product use in unapproved indication [Unknown]

NARRATIVE: CASE EVENT DATE: 20240101
